FAERS Safety Report 6051594-4 (Version None)
Quarter: 2009Q1

REPORT INFORMATION
  Report Type: 
  Country: None (occurrence: None)
  Receive Date: 20090126
  Receipt Date: 20090115
  Transmission Date: 20090719
  Serious: Yes (Hospitalization, Disabling)
  Sender: FDA-Public Use
  Company Number: US-MERCK-0805USA00914

PATIENT
  Age: 79 Year
  Sex: Female
  Weight: 99 kg

DRUGS (10)
  1. FOSAMAX [Suspect]
     Indication: SENILE OSTEOPOROSIS
     Route: 048
     Dates: start: 20010201, end: 20060515
  2. [THERAPY UNSPECIFIED] [Concomitant]
     Indication: DIABETES MELLITUS
     Route: 065
     Dates: start: 20020101
  3. [THERAPY UNSPECIFIED] [Concomitant]
     Indication: HYPERTENSION
     Route: 065
     Dates: start: 19690101
  4. AMARYL [Concomitant]
     Indication: DIABETES MELLITUS
     Route: 065
     Dates: start: 20000101, end: 20060101
  5. TENORMIN [Concomitant]
     Indication: HYPERTENSION
     Route: 065
     Dates: start: 20000101, end: 20060101
  6. ATACAND [Concomitant]
     Indication: HYPERTENSION
     Route: 065
     Dates: start: 20000101, end: 20060101
  7. DYAZIDE [Concomitant]
     Indication: HYPERTENSION
     Route: 065
     Dates: start: 20020101, end: 20060101
  8. [THERAPY UNSPECIFIED] [Concomitant]
     Route: 065
     Dates: start: 20030101, end: 20060101
  9. CALCIUM (UNSPECIFIED) AND VITAMIN D (UNSPECIFIED) [Concomitant]
     Indication: PROPHYLAXIS
     Route: 065
     Dates: start: 20060101, end: 20060101
  10. CARDENE [Concomitant]
     Indication: HYPERTENSION
     Route: 065
     Dates: start: 20030101, end: 20060101

REACTIONS (6)
  - ARTHRALGIA [None]
  - HYPERCALCAEMIA [None]
  - JAW FRACTURE [None]
  - OSTEOMYELITIS [None]
  - OSTEONECROSIS [None]
  - SPINAL OSTEOARTHRITIS [None]
